FAERS Safety Report 19455626 (Version 1)
Quarter: 2021Q2

REPORT INFORMATION
  Report Type: Report from Study
  Country: None (occurrence: US)
  Receive Date: 20210623
  Receipt Date: 20210623
  Transmission Date: 20210717
  Serious: Yes (Hospitalization, Other)
  Sender: FDA-Public Use
  Company Number: US-ABBVIE-21K-163-3941334-00

PATIENT
  Sex: Male
  Weight: 47.67 kg

DRUGS (1)
  1. CREON [Suspect]
     Active Substance: PANCRELIPASE AMYLASE\PANCRELIPASE LIPASE\PANCRELIPASE PROTEASE
     Indication: PRODUCT USED FOR UNKNOWN INDICATION
     Route: 048

REACTIONS (5)
  - Incorrect dose administered [Unknown]
  - Hospitalisation [Unknown]
  - Bedridden [Unknown]
  - Weight decreased [Unknown]
  - Illness [Not Recovered/Not Resolved]

NARRATIVE: CASE EVENT DATE: 2021
